FAERS Safety Report 10805402 (Version 1)
Quarter: 2015Q1

REPORT INFORMATION
  Report Type: Report from Study
  Country: US (occurrence: US)
  Receive Date: 20150217
  Receipt Date: 20150217
  Transmission Date: 20150721
  Serious: No
  Sender: FDA-Public Use
  Company Number: US-ABBVIE-14K-163-1264676-00

PATIENT
  Age: 29 Year
  Sex: Female

DRUGS (11)
  1. VITAMIN B12 [Concomitant]
     Active Substance: CYANOCOBALAMIN
     Indication: PRODUCT USED FOR UNKNOWN INDICATION
  2. HUMIRA [Suspect]
     Active Substance: ADALIMUMAB
  3. PREDNISONE. [Suspect]
     Active Substance: PREDNISONE
  4. PENTASA [Concomitant]
     Active Substance: MESALAMINE
     Indication: CROHN^S DISEASE
  5. HUMIRA [Suspect]
     Active Substance: ADALIMUMAB
     Indication: CROHN^S DISEASE
     Dates: start: 20140618, end: 20140618
  6. PROBIOTICS [Concomitant]
     Active Substance: PROBIOTICS NOS
     Dates: start: 20140710
  7. PREDNISONE. [Suspect]
     Active Substance: PREDNISONE
     Dates: start: 20140710
  8. PREDNISONE. [Suspect]
     Active Substance: PREDNISONE
     Dates: start: 20140716
  9. PREDNISONE. [Suspect]
     Active Substance: PREDNISONE
     Indication: PRODUCT USED FOR UNKNOWN INDICATION
     Dates: start: 201406
  10. PROBIOTICS [Concomitant]
     Active Substance: PROBIOTICS NOS
     Indication: PRODUCT USED FOR UNKNOWN INDICATION
     Dosage: BEFORE HUMIRA
  11. HUMIRA [Suspect]
     Active Substance: ADALIMUMAB
     Dates: start: 20140703, end: 20140703

REACTIONS (5)
  - Inappropriate schedule of drug administration [Recovered/Resolved]
  - Back pain [Not Recovered/Not Resolved]
  - Inappropriate schedule of drug administration [Unknown]
  - Abscess intestinal [Not Recovered/Not Resolved]
  - Abdominal pain upper [Unknown]

NARRATIVE: CASE EVENT DATE: 2014
